FAERS Safety Report 18968095 (Version 1)
Quarter: 2021Q1

REPORT INFORMATION
  Report Type: Report from Study
  Country: PK (occurrence: PK)
  Receive Date: 20210304
  Receipt Date: 20210304
  Transmission Date: 20210420
  Serious: Yes (Other)
  Sender: FDA-Public Use
  Company Number: NVSC2021PK046460

PATIENT
  Age: 48 Year
  Sex: Female

DRUGS (2)
  1. SANDIMMUN NEORAL [Suspect]
     Active Substance: CYCLOSPORINE
     Indication: LIVER TRANSPLANT
     Dosage: 100 MG, BID
     Route: 048
     Dates: start: 20200306, end: 20210223
  2. SANDIMMUN NEORAL [Suspect]
     Active Substance: CYCLOSPORINE
     Dosage: 125 MG, BID
     Route: 048
     Dates: start: 20210223

REACTIONS (1)
  - Drug level increased [Not Recovered/Not Resolved]

NARRATIVE: CASE EVENT DATE: 20210220
